FAERS Safety Report 25243797 (Version 1)
Quarter: 2025Q2

REPORT INFORMATION
  Report Type: Spontaneous
  Country: US (occurrence: US)
  Receive Date: 20250428
  Receipt Date: 20250428
  Transmission Date: 20250716
  Serious: Yes (Other)
  Sender: PIRAMAL
  Company Number: US-PCCINC-2025-PPL-000254

PATIENT

DRUGS (1)
  1. GABLOFEN [Suspect]
     Active Substance: BACLOFEN
     Indication: Product used for unknown indication
     Route: 037

REACTIONS (2)
  - Overdose [Recovered/Resolved]
  - Withdrawal syndrome [Recovered/Resolved]
